FAERS Safety Report 24269542 (Version 1)
Quarter: 2024Q3

REPORT INFORMATION
  Report Type: Spontaneous
  Country: US (occurrence: None)
  Receive Date: 20240830
  Receipt Date: 20240830
  Transmission Date: 20241016
  Serious: Yes (Hospitalization)
  Sender: Public
  Company Number: None

PATIENT
  Sex: Male
  Weight: 121.6 kg

DRUGS (1)
  1. CASODEX [Suspect]
     Active Substance: BICALUTAMIDE

REACTIONS (7)
  - Urinary fistula [None]
  - Cystitis noninfective [None]
  - Vesicourethral anastomosis [None]
  - Groin pain [None]
  - Urinary incontinence [None]
  - Urinary tract infection [None]
  - Osteomyelitis [None]

NARRATIVE: CASE EVENT DATE: 20231202
